FAERS Safety Report 8590044-0 (Version None)
Quarter: 2012Q3

REPORT INFORMATION
  Report Type: 
  Country: None (occurrence: None)
  Receive Date: 20120813
  Receipt Date: 20120806
  Transmission Date: 20120928
  Serious: Yes (Hospitalization)
  Sender: FDA-Public Use
  Company Number: CH-UCBSA-063304

PATIENT
  Age: 60 Year
  Sex: Female
  Weight: 87 kg

DRUGS (6)
  1. CIMZIA [Suspect]
     Indication: RHEUMATOID ARTHRITIS
     Route: 058
     Dates: start: 20120306
  2. METHOTREXATE [Concomitant]
     Indication: RHEUMATOID ARTHRITIS
     Route: 058
     Dates: start: 20090901
  3. LEFLUNOMIDE [Concomitant]
     Indication: RHEUMATOID ARTHRITIS
     Route: 048
     Dates: start: 20110201
  4. CLINDAMYCIN HCL [Suspect]
     Indication: ERYSIPELAS
     Route: 048
     Dates: start: 20120629, end: 20120708
  5. CLARITHROMYCIN [Suspect]
     Indication: ERYSIPELAS
     Route: 048
     Dates: start: 20120629, end: 20120708
  6. ENOXAPARIN SODIUM [Concomitant]
     Indication: ERYSIPELAS
     Route: 058
     Dates: start: 20120629, end: 20120714

REACTIONS (2)
  - ERYSIPELAS [None]
  - RASH [None]
